FAERS Safety Report 12179597 (Version 2)
Quarter: 2020Q1

REPORT INFORMATION
  Report Type: Spontaneous
  Country: US (occurrence: US)
  Receive Date: 20160315
  Receipt Date: 20200325
  Transmission Date: 20200409
  Serious: Yes (Death, Hospitalization, Other)
  Sender: FDA-Public Use
  Company Number: US-009507513-1603USA006399

PATIENT
  Sex: Male

DRUGS (1)
  1. JANUVIA [Suspect]
     Active Substance: SITAGLIPTIN PHOSPHATE
     Dosage: 100 MILLIGRAM, QD
     Route: 048
     Dates: start: 20070531, end: 201304

REACTIONS (8)
  - Diabetes mellitus inadequate control [Unknown]
  - Pain [Unknown]
  - Cerebrovascular accident [Fatal]
  - Infection [Unknown]
  - Weight decreased [Unknown]
  - Pancreatic carcinoma [Fatal]
  - Blood cholesterol increased [Unknown]
  - Oedema [Unknown]

NARRATIVE: CASE EVENT DATE: 201303
